FAERS Safety Report 17204110 (Version 1)
Quarter: 2019Q4

REPORT INFORMATION
  Report Type: Spontaneous
  Country: US (occurrence: US)
  Receive Date: 20191226
  Receipt Date: 20191226
  Transmission Date: 20200122
  Serious: No
  Sender: FDA-Public Use
  Company Number: US-SA-2019SA355793

PATIENT
  Age: 25 Year
  Sex: Female
  Weight: 93.42 kg

DRUGS (1)
  1. DUPIXENT [Suspect]
     Active Substance: DUPILUMAB
     Indication: CHRONIC RHINOSINUSITIS WITH NASAL POLYPS
     Dosage: 300 MG, QOW
     Dates: start: 20191126

REACTIONS (3)
  - Pain in extremity [Unknown]
  - Arthralgia [Unknown]
  - Pain [Unknown]

NARRATIVE: CASE EVENT DATE: 20191215
